FAERS Safety Report 15323415 (Version 2)
Quarter: 2019Q1

REPORT INFORMATION
  Report Type: Report from Study
  Country: US (occurrence: US)
  Receive Date: 20180827
  Receipt Date: 20190130
  Transmission Date: 20190417
  Serious: Yes (Hospitalization)
  Sender: FDA-Public Use
  Company Number: US-SA-2018SA230014

PATIENT
  Age: 68 Year
  Sex: Female
  Weight: 118.84 kg

DRUGS (3)
  1. HUMIRA [Suspect]
     Active Substance: ADALIMUMAB
     Dosage: 1 UNK
     Dates: end: 2018
  2. HUMIRA [Suspect]
     Active Substance: ADALIMUMAB
     Indication: PSORIATIC ARTHROPATHY
     Dosage: 1 DF, QOW
     Route: 058
     Dates: end: 201807
  3. ENOXAPARIN SODIUM. [Suspect]
     Active Substance: ENOXAPARIN SODIUM
     Indication: PRODUCT USED FOR UNKNOWN INDICATION
     Dosage: UNK UNK, UNK
     Route: 065

REACTIONS (7)
  - Rash pruritic [Unknown]
  - Contusion [Unknown]
  - Drug hypersensitivity [Unknown]
  - Sinus congestion [Unknown]
  - Adverse drug reaction [Unknown]
  - Cardiac failure congestive [Unknown]
  - Urticaria [Unknown]
